FAERS Safety Report 6523065 (Version 26)
Quarter: 2013Q4

REPORT INFORMATION
  Report Type: Spontaneous
  Country: US (occurrence: US)
  Receive Date: 20080110
  Receipt Date: 20131217
  Transmission Date: 20140711
  Serious: Yes (Death, Other)
  Sender: FDA-Public Use
  Company Number: PHEH2008US00490

PATIENT
  Age: 89 Year
  Sex: Male

DRUGS (16)
  1. ZOMETA [Suspect]
     Dosage: 4 MG, QMO
     Route: 042
  2. LANOXIN [Concomitant]
  3. PERIOSTAT [Concomitant]
     Dosage: 1 DF, BID
     Route: 048
  4. LEVAQUIN [Concomitant]
  5. CLINDAMYCIN [Concomitant]
     Dosage: 150 MG, QID
  6. PERIDEX [Concomitant]
  7. ROXANOL [Concomitant]
     Dosage: 5 MG, Q4H
     Route: 048
  8. METHADONE [Concomitant]
     Dosage: UNK UKN, BID
  9. RISPERDAL [Concomitant]
     Dosage: 1 MG, QHS
     Route: 048
  10. DIGITEK [Concomitant]
     Dosage: 0.125 MG, QD
     Route: 048
  11. ASPIRIN [Concomitant]
  12. ENABLEX [Concomitant]
     Dosage: 75 MG, QD
  13. VASOTEC [Concomitant]
     Dosage: 5 MG, QD
  14. MAG-OX [Concomitant]
     Dosage: 400 MG, QD
  15. COLACE [Concomitant]
     Dosage: 100 MG, BID
  16. LEXAPRO [Concomitant]
     Dosage: 10 MG, QD

REACTIONS (118)
  - Death [Fatal]
  - Osteonecrosis of jaw [Unknown]
  - Injury [Unknown]
  - Pain [Unknown]
  - Anxiety [Unknown]
  - Pain in jaw [Unknown]
  - Swelling [Unknown]
  - Exposed bone in jaw [Unknown]
  - Osteomyelitis [Unknown]
  - Gingival bleeding [Unknown]
  - Anhedonia [Unknown]
  - Upper respiratory tract infection [Unknown]
  - Prostate cancer metastatic [Unknown]
  - Second primary malignancy [Unknown]
  - Urinary tract infection [Unknown]
  - Bladder outlet obstruction [Unknown]
  - Prostatomegaly [Unknown]
  - Metastases to bone [Unknown]
  - Metastases to spine [Unknown]
  - Metastases to pelvis [Unknown]
  - Coronary artery disease [Unknown]
  - Myocardial ischaemia [Unknown]
  - Diabetes mellitus [Unknown]
  - Nephrolithiasis [Unknown]
  - Hypotension [Unknown]
  - Confusional state [Unknown]
  - Acute prerenal failure [Unknown]
  - Calculus ureteric [Unknown]
  - Deafness bilateral [Unknown]
  - Intervertebral disc degeneration [Unknown]
  - Spinal compression fracture [Unknown]
  - Intervertebral disc space narrowing [Unknown]
  - Lumbar spinal stenosis [Unknown]
  - Lumbar radiculopathy [Unknown]
  - Spinal osteoarthritis [Unknown]
  - Vertebral foraminal stenosis [Unknown]
  - Aortic arteriosclerosis [Unknown]
  - Aortic aneurysm [Unknown]
  - Hiatus hernia [Unknown]
  - Hepatic cyst [Unknown]
  - Osteoarthritis [Unknown]
  - Neuropathy peripheral [Unknown]
  - Gout [Unknown]
  - Depression [Unknown]
  - Dementia [Unknown]
  - Amnesia [Unknown]
  - Mitral valve prolapse [Unknown]
  - Subdural haematoma [Unknown]
  - Diarrhoea [Unknown]
  - Hyperlipidaemia [Unknown]
  - Vertigo [Unknown]
  - Dizziness [Unknown]
  - Pollakiuria [Unknown]
  - Decreased appetite [Unknown]
  - Back pain [Unknown]
  - Arrhythmia [Unknown]
  - Myalgia [Unknown]
  - Arthralgia [Unknown]
  - Cerebellar atrophy [Unknown]
  - Nocturia [Unknown]
  - Parkinsonism [Unknown]
  - Gait disturbance [Unknown]
  - Brain injury [Unknown]
  - Cerebral haemorrhage [Unknown]
  - Convulsion [Unknown]
  - Cardiac failure congestive [Unknown]
  - Carotid artery disease [Unknown]
  - Hyponatraemia [Unknown]
  - Anaemia [Unknown]
  - Malnutrition [Unknown]
  - Hypertension [Unknown]
  - Sick sinus syndrome [Unknown]
  - Aortic stenosis [Unknown]
  - Pleural effusion [Unknown]
  - Atelectasis [Unknown]
  - Urinary retention [Unknown]
  - Encephalopathy [Recovering/Resolving]
  - Dyspnoea exertional [Unknown]
  - Left ventricular hypertrophy [Unknown]
  - Cardiomegaly [Unknown]
  - Oedema peripheral [Unknown]
  - Onychomycosis [Unknown]
  - Foot deformity [Unknown]
  - Palpitations [Unknown]
  - Syncope [Unknown]
  - Atrial fibrillation [Unknown]
  - Sinus arrhythmia [Unknown]
  - Pneumothorax [Unknown]
  - Carotid artery stenosis [Unknown]
  - Fall [Unknown]
  - Tooth loss [Unknown]
  - Dysphagia [Unknown]
  - Mastication disorder [Unknown]
  - Head injury [Unknown]
  - Tremor [Unknown]
  - Hallucination, visual [Unknown]
  - Delusional disorder, persecutory type [Unknown]
  - Malignant melanoma in situ [Unknown]
  - Melanocytic hyperplasia [Unknown]
  - Cataract [Unknown]
  - Angina unstable [Unknown]
  - Dehydration [Unknown]
  - Rhinorrhoea [Unknown]
  - Atrioventricular block first degree [Unknown]
  - Bundle branch block right [Unknown]
  - Bundle branch block left [Unknown]
  - Arthritis [Unknown]
  - Gingivitis [Unknown]
  - Osteosclerosis [Unknown]
  - Bone lesion [Unknown]
  - Sinusitis [Unknown]
  - Skin lesion [Unknown]
  - Neck pain [Unknown]
  - Oesophageal motility disorder [Unknown]
  - Vision blurred [Unknown]
  - Periodontal disease [Unknown]
  - Periodontal inflammation [Unknown]
  - Granuloma [Unknown]
